FAERS Safety Report 11757915 (Version 1)
Quarter: 2015Q4

REPORT INFORMATION
  Report Type: Spontaneous
  Country: US (occurrence: US)
  Receive Date: 20151120
  Receipt Date: 20151120
  Transmission Date: 20160304
  Serious: Yes (Death, Hospitalization)
  Sender: FDA-Public Use
  Company Number: US-GLENMARK PHARMACEUTICALS INC, USA.-2015GMK020818

PATIENT
  Age: 49 Year
  Sex: Male

DRUGS (1)
  1. VORICONAZOLE TABLETS [Suspect]
     Active Substance: VORICONAZOLE
     Indication: ASPERGILLUS INFECTION
     Dosage: UNK
     Route: 042

REACTIONS (2)
  - Condition aggravated [Fatal]
  - Drug ineffective [Fatal]
